FAERS Safety Report 10945834 (Version 1)
Quarter: 2015Q1

REPORT INFORMATION
  Report Type: Report from Study
  Country: US (occurrence: US)
  Receive Date: 20150323
  Receipt Date: 20150323
  Transmission Date: 20150721
  Serious: Yes (Death, Other)
  Sender: FDA-Public Use
  Company Number: US-BAYER-2014-185254

PATIENT
  Age: 63 Year
  Sex: Male
  Weight: 68.27 kg

DRUGS (6)
  1. LANTUS [Concomitant]
     Active Substance: INSULIN GLARGINE
  2. LASIX [Concomitant]
     Active Substance: FUROSEMIDE
  3. NEXAVAR [Suspect]
     Active Substance: SORAFENIB
     Indication: HEPATIC CANCER
     Dosage: 400 MG, BID
     Route: 048
     Dates: start: 20141111
  4. FUROSEMIDE. [Concomitant]
     Active Substance: FUROSEMIDE
  5. ENALAPRIL MALEATE. [Concomitant]
     Active Substance: ENALAPRIL MALEATE
  6. SPIRONOLACTONE. [Concomitant]
     Active Substance: SPIRONOLACTONE

REACTIONS (9)
  - Endocarditis [None]
  - Staphylococcal infection [None]
  - Sepsis [None]
  - Pericarditis infective [None]
  - Drug dose omission [None]
  - Atrioventricular block complete [Fatal]
  - Myocardiac abscess [None]
  - Purulent pericarditis [None]
  - Arthralgia [Unknown]

NARRATIVE: CASE EVENT DATE: 20141216
